FAERS Safety Report 13768727 (Version 3)
Quarter: 2018Q1

REPORT INFORMATION
  Report Type: Spontaneous
  Country: JP (occurrence: JP)
  Receive Date: 20170719
  Receipt Date: 20180117
  Transmission Date: 20180508
  Serious: Yes (Life-Threatening, Other)
  Sender: FDA-Public Use
  Company Number: JP-009507513-1707JPN000559J

PATIENT
  Age: 57 Year
  Sex: Male
  Weight: 60 kg

DRUGS (8)
  1. ATROPINE SULFATE. [Concomitant]
     Active Substance: ATROPINE SULFATE
     Indication: SURGERY
     Dosage: 1 ML, UNK
     Route: 042
     Dates: start: 20170715, end: 20170715
  2. ESLAX INTRAVENOUS 25MG/2.5ML [Suspect]
     Active Substance: ROCURONIUM BROMIDE
     Indication: NEUROMUSCULAR BLOCKING THERAPY
     Dosage: 25 MG, QD
     Route: 042
     Dates: start: 20170715, end: 20170715
  3. SODIUM CHLORIDE BAXTER [Concomitant]
     Dosage: 8 ML, UNK
     Route: 042
     Dates: start: 20170715, end: 20170715
  4. CEFMETAZOLE SODIUM [Concomitant]
     Active Substance: CEFMETAZOLE SODIUM
     Indication: SURGERY
     Dosage: 1 G, BID
     Route: 042
     Dates: start: 20170715, end: 20170715
  5. SODIUM CHLORIDE BAXTER [Concomitant]
     Dosage: 50 ML, BID
     Route: 042
     Dates: start: 20170715, end: 20170715
  6. DORMICUM [Concomitant]
     Indication: SURGERY
     Dosage: 2 ML, UNK
     Route: 042
     Dates: start: 20170715, end: 20170715
  7. SODIUM CHLORIDE BAXTER [Concomitant]
     Indication: MEDICATION DILUTION
     Dosage: 7.5 ML, UNK
     Route: 042
     Dates: start: 20170715, end: 20170715
  8. LACTEC-G [Concomitant]
     Indication: SURGERY
     Dosage: 500 ML, UNK
     Route: 042
     Dates: start: 20170715, end: 20170715

REACTIONS (3)
  - Seizure [Recovering/Resolving]
  - Atrial fibrillation [Unknown]
  - Bronchospasm [Recovered/Resolved]

NARRATIVE: CASE EVENT DATE: 20170715
